FAERS Safety Report 5631992-0 (Version None)
Quarter: 2008Q1

REPORT INFORMATION
  Report Type: 
  Country: None (occurrence: None)
  Receive Date: 20080220
  Receipt Date: 20080206
  Transmission Date: 20080703
  Serious: Yes (Other)
  Sender: FDA-Public Use
  Company Number: US-BAYER-200810576BCC

PATIENT
  Age: 51 Year
  Sex: Female
  Weight: 68 kg

DRUGS (2)
  1. BAYER EXTRA STRENGTH BACK AND BODY [Suspect]
     Indication: BACK PAIN
     Dosage: TOTAL DAILY DOSE: 1000 MG  UNIT DOSE: 500 MG
     Route: 048
     Dates: start: 20080204
  2. MULTIVITAMIN GENERIC [Concomitant]
     Route: 048

REACTIONS (4)
  - BLOOD CAFFEINE INCREASED [None]
  - BLOOD PRESSURE INCREASED [None]
  - DYSPEPSIA [None]
  - HEART RATE INCREASED [None]
